FAERS Safety Report 25125147 (Version 1)
Quarter: 2025Q1

REPORT INFORMATION
  Report Type: Spontaneous
  Country: BG (occurrence: BG)
  Receive Date: 20250326
  Receipt Date: 20250326
  Transmission Date: 20250409
  Serious: Yes (Hospitalization)
  Sender: NOVARTIS
  Company Number: BG-002147023-NVSC2025BG050111

PATIENT
  Age: 64 Year
  Sex: Female

DRUGS (8)
  1. VALSARTAN [Suspect]
     Active Substance: VALSARTAN
     Indication: Hypertension
     Dosage: 160 MG, QD HALF A TABLET IN THE MORNING
     Route: 065
     Dates: start: 202304
  2. BISOPROLOL FUMARATE [Suspect]
     Active Substance: BISOPROLOL FUMARATE
     Indication: Hypertension
     Dosage: 5 MG, QD, HALF A TABLET IN THE MORNING
     Route: 065
     Dates: start: 202304
  3. SPIRONOLACTONE [Suspect]
     Active Substance: SPIRONOLACTONE
     Indication: Hypertension
     Dosage: 25 MG, QD, ONCE IN THE MORNING
     Route: 065
     Dates: start: 202304
  4. CHLORTHALIDONE [Suspect]
     Active Substance: CHLORTHALIDONE
     Indication: Hypertension
     Dosage: 25 MG, QD, ONCE IN THE MORNING
     Route: 065
     Dates: start: 202304
  5. ROSUVASTATIN [Suspect]
     Active Substance: ROSUVASTATIN
     Indication: Vertebrobasilar stroke
     Dosage: 10 MG, QD, ONCE IN THE EVENING
     Route: 065
     Dates: start: 202304
  6. MOXONIDINE [Suspect]
     Active Substance: MOXONIDINE
     Indication: Hypertension
     Dosage: 0.2 MG, BID
     Route: 065
  7. CLOPIDOGREL [Concomitant]
     Active Substance: CLOPIDOGREL BISULFATE
     Indication: Vertebrobasilar stroke
     Dosage: 75 MG, QD, ONCE IN THE MORNING
     Route: 065
     Dates: start: 202304
  8. BETAHISTINE [Concomitant]
     Active Substance: BETAHISTINE
     Indication: Hypertension
     Dosage: 24 MG BID, ONE IN THE MORNING AND ONE IN THE EVENING
     Route: 065
     Dates: start: 202304

REACTIONS (12)
  - Lichen planopilaris [Recovering/Resolving]
  - Alopecia [Recovering/Resolving]
  - Rash pruritic [Recovering/Resolving]
  - Papule [Recovering/Resolving]
  - Skin mass [Recovering/Resolving]
  - Alopecia scarring [Recovering/Resolving]
  - Hyperkeratosis [Recovering/Resolving]
  - Acanthosis [Recovering/Resolving]
  - Lichen planopilaris [Recovering/Resolving]
  - Chronic papillomatous dermatitis [Recovering/Resolving]
  - Lichenoid keratosis [Recovering/Resolving]
  - Lichen planus [Recovering/Resolving]
